FAERS Safety Report 8504488-6 (Version None)
Quarter: 2012Q3

REPORT INFORMATION
  Report Type: 
  Country: None (occurrence: None)
  Receive Date: 20120711
  Receipt Date: 20120703
  Transmission Date: 20120928
  Serious: Yes (Hospitalization, Disabling, Other)
  Sender: FDA-Public Use
  Company Number: GB-PFIZER INC-2012159049

PATIENT
  Age: 76 Year
  Sex: Male
  Weight: 93 kg

DRUGS (11)
  1. AMLODIPINE [Concomitant]
     Indication: COLITIS MICROSCOPIC
     Dosage: UNK
     Dates: start: 20020101
  2. TRAMADOL HCL [Concomitant]
     Dosage: UNK
  3. ATENOLOL [Concomitant]
     Dosage: UNK
     Dates: start: 20020101
  4. SODIUM BICARBONATE [Concomitant]
     Dosage: UNK
  5. SIMVASTATIN [Concomitant]
     Dosage: UNK
     Dates: start: 20020101
  6. CO-DYDRAMOL [Concomitant]
     Dosage: UNK
  7. CIRCADIAN [Concomitant]
     Dosage: UNK
  8. RAMIPRIL [Suspect]
     Indication: HYPERTENSION
     Dosage: UNK
     Route: 065
     Dates: start: 20110901, end: 20120325
  9. ASACOL [Concomitant]
     Indication: HYPERTENSION
     Dosage: UNK
     Dates: start: 20020101
  10. CLOPIDOGREL [Concomitant]
     Indication: CARDIAC FAILURE
     Dosage: UNK
     Dates: start: 20020101
  11. DOXAZOSIN MESYLATE [Concomitant]
     Dosage: UNK

REACTIONS (8)
  - ABASIA [None]
  - GAIT DISTURBANCE [None]
  - ASTHENIA [None]
  - SYNCOPE [None]
  - DYSSTASIA [None]
  - ORTHOSTATIC HYPOTENSION [None]
  - MALAISE [None]
  - JOINT RANGE OF MOTION DECREASED [None]
